FAERS Safety Report 6632214-4 (Version None)
Quarter: 2010Q1

REPORT INFORMATION
  Report Type: 
  Country: None (occurrence: None)
  Receive Date: 20100312
  Receipt Date: 20100302
  Transmission Date: 20100710
  Serious: Yes (Death)
  Sender: FDA-Public Use
  Company Number: GXKR2010GB02522

PATIENT
  Age: 40 Year
  Sex: Female

DRUGS (3)
  1. AMISULPRIDE (NGX) [Suspect]
  2. CLOMIPRAMINE (NGX) [Suspect]
     Indication: ANTIDEPRESSANT THERAPY
  3. LITHIUM [Suspect]
     Dosage: UNK

REACTIONS (9)
  - CEREBRAL HAEMORRHAGE [None]
  - CIRCULATORY COLLAPSE [None]
  - DISORIENTATION [None]
  - HYPERTENSION [None]
  - NEUROLEPTIC MALIGNANT SYNDROME [None]
  - PYREXIA [None]
  - RENAL FAILURE ACUTE [None]
  - RHABDOMYOLYSIS [None]
  - TACHYCARDIA [None]
